FAERS Safety Report 24531083 (Version 1)
Quarter: 2024Q4

REPORT INFORMATION
  Report Type: Spontaneous
  Country: GB (occurrence: GB)
  Receive Date: 20241022
  Receipt Date: 20241022
  Transmission Date: 20250115
  Serious: Yes (Other)
  Sender: GLAXOSMITHKLINE
  Company Number: None

PATIENT

DRUGS (3)
  1. LAMOTRIGINE [Suspect]
     Active Substance: LAMOTRIGINE
     Indication: Bipolar disorder
     Dosage: 150 MG, QD
     Route: 065
     Dates: start: 2021
  2. HERBALS [Suspect]
     Active Substance: HERBALS
     Indication: Attention deficit hyperactivity disorder
     Dosage: UNK UNK, QD;30,000 DAILY
     Route: 065
     Dates: start: 20240923, end: 20241007
  3. FLUTICASONE FUROATE [Concomitant]
     Active Substance: FLUTICASONE FUROATE
     Indication: Nasal septum deviation
     Dosage: UNK
     Route: 065
     Dates: start: 2021

REACTIONS (2)
  - Herbal interaction [Recovered/Resolved]
  - Mood swings [Recovered/Resolved]

NARRATIVE: CASE EVENT DATE: 20240923
